FAERS Safety Report 14812817 (Version 2)
Quarter: 2018Q4

REPORT INFORMATION
  Report Type: Spontaneous
  Country: FR (occurrence: FR)
  Receive Date: 20180426
  Receipt Date: 20181025
  Transmission Date: 20190204
  Serious: Yes (Other)
  Sender: FDA-Public Use
  Company Number: FR-MERCK KGAA-2046526

PATIENT
  Age: 54 Year
  Sex: Female

DRUGS (1)
  1. EUTHYROX [Suspect]
     Active Substance: LEVOTHYROXINE SODIUM
     Indication: POST PROCEDURAL HYPOTHYROIDISM
     Dates: start: 201704

REACTIONS (36)
  - Hyperthyroidism [None]
  - Fatigue [None]
  - Constipation [None]
  - Mood altered [None]
  - Oedema genital [None]
  - Lip swelling [None]
  - Oedema peripheral [None]
  - Aggression [None]
  - Pain [None]
  - Localised oedema [None]
  - Vertigo [None]
  - Depression [None]
  - Social avoidant behaviour [None]
  - Loss of personal independence in daily activities [None]
  - Hypothyroidism [None]
  - Alopecia [None]
  - Depressed mood [None]
  - Arthralgia [None]
  - Marital problem [None]
  - Memory impairment [None]
  - Asthenia [None]
  - Thyroxine increased [None]
  - Insomnia [None]
  - Personality change [None]
  - Nervousness [None]
  - Muscle spasms [None]
  - Face oedema [None]
  - Weight increased [None]
  - Gastrointestinal pain [None]
  - Libido decreased [None]
  - Middle insomnia [None]
  - Initial insomnia [None]
  - Blood thyroid stimulating hormone decreased [None]
  - Anxiety [None]
  - Headache [None]
  - Movement disorder [None]

NARRATIVE: CASE EVENT DATE: 201704
